FAERS Safety Report 5487939-3 (Version None)
Quarter: 2007Q3

REPORT INFORMATION
  Report Type: 
  Country: None (occurrence: None)
  Receive Date: 20070925
  Receipt Date: 20070625
  Transmission Date: 20080115
  Serious: No
  Sender: FDA-Public Use
  Company Number: 2007US001481

PATIENT
  Age: 80 Year
  Sex: Female
  Weight: 85.3 kg

DRUGS (14)
  1. VESICARE [Suspect]
     Indication: HYPERTONIC BLADDER
     Dosage: 5 MG, UID/QD, ORAL; 5 MG
     Route: 048
     Dates: start: 20070606, end: 20070629
  2. SIMVASTATIN [Concomitant]
  3. METFORMIN HCL [Concomitant]
  4. LISINOPRIL (LISINOPRIL DIHYDRATE) [Concomitant]
  5. LEVOTHYROXINE SODIUM [Concomitant]
  6. ACTONEL [Concomitant]
  7. TRAVATAN [Concomitant]
  8. FLUOCINONIDE [Concomitant]
  9. ECONAZOLE NITRATE [Concomitant]
  10. CLOBETASOL PROPIONATE [Concomitant]
  11. ASPIRIN [Concomitant]
  12. TYLENOL (CAPLET) [Concomitant]
  13. COLACE (DOCUSATE SODIUM) [Concomitant]
  14. CALCIUM (ASCORBIC ACID) [Concomitant]

REACTIONS (2)
  - ABDOMINAL PAIN UPPER [None]
  - DIARRHOEA [None]
